FAERS Safety Report 16051807 (Version 1)
Quarter: 2019Q1

REPORT INFORMATION
  Report Type: Report from Study
  Country: GB (occurrence: GB)
  Receive Date: 20190308
  Receipt Date: 20190308
  Transmission Date: 20190418
  Serious: Yes (Hospitalization, Other)
  Sender: FDA-Public Use
  Company Number: GB-ASPEN-GLO2018GB013418

PATIENT
  Age: 75 Year
  Sex: Male

DRUGS (2)
  1. POMALIDOMIDE [Suspect]
     Active Substance: POMALIDOMIDE
     Indication: PLASMA CELL MYELOMA
     Dosage: 4 MG. 84 MG EVERY 28 DAYS
     Route: 048
     Dates: start: 20181009, end: 20181014
  2. DEXAMETHASONE. [Suspect]
     Active Substance: DEXAMETHASONE
     Indication: PLASMA CELL MYELOMA
     Dosage: 20 MG
     Route: 048

REACTIONS (3)
  - Biliary sepsis [Recovered/Resolved]
  - Drug-induced liver injury [Recovered/Resolved]
  - Pyrexia [Not Recovered/Not Resolved]

NARRATIVE: CASE EVENT DATE: 20181013
